FAERS Safety Report 8106852-6 (Version None)
Quarter: 2011Q4

REPORT INFORMATION
  Report Type: 
  Country: None (occurrence: None)
  Receive Date: 20111227
  Receipt Date: 20110916
  Transmission Date: 20120403
  Serious: No
  Sender: FDA-Public Use
  Company Number: PHEH2011US04818

PATIENT
  Age: 49 Year
  Sex: Female

DRUGS (1)
  1. GILENYA [Suspect]
     Dosage: 0.5 MG, DAILY, ORAL
     Route: 048
     Dates: start: 20110425

REACTIONS (5)
  - LACRIMATION INCREASED [None]
  - NAUSEA [None]
  - SOMNOLENCE [None]
  - INFLUENZA LIKE ILLNESS [None]
  - RHINORRHOEA [None]
